FAERS Safety Report 21186848 (Version 9)
Quarter: 2023Q4

REPORT INFORMATION
  Report Type: Spontaneous
  Country: JP (occurrence: JP)
  Receive Date: 20220808
  Receipt Date: 20231128
  Transmission Date: 20240109
  Serious: Yes (Hospitalization, Other)
  Sender: FDA-Public Use
  Company Number: JP-GLAXOSMITHKLINE-JP2022JPN113990

PATIENT

DRUGS (8)
  1. FLOLAN [Suspect]
     Active Substance: EPOPROSTENOL SODIUM
     Indication: Heritable pulmonary arterial hypertension
     Dosage: 53NG/KG/MIN
     Route: 041
     Dates: start: 200605
  2. FLOLAN [Suspect]
     Active Substance: EPOPROSTENOL SODIUM
     Dosage: UNK
     Route: 041
  3. FUROSEMIDE [Concomitant]
     Active Substance: FUROSEMIDE
     Indication: Heritable pulmonary arterial hypertension
     Dosage: 20 MG, BID
     Route: 048
     Dates: start: 200503
  4. SPIRONOLACTONE [Concomitant]
     Active Substance: SPIRONOLACTONE
     Indication: Heritable pulmonary arterial hypertension
     Dosage: 25 MG, BID
     Route: 048
     Dates: start: 200503
  5. DIGOXIN [Concomitant]
     Active Substance: DIGOXIN
     Indication: Heritable pulmonary arterial hypertension
     Dosage: 0.125 MG, QD
     Route: 048
     Dates: start: 201212
  6. OPSUMIT [Concomitant]
     Active Substance: MACITENTAN
     Indication: Heritable pulmonary arterial hypertension
     Dosage: 10 MG, QD
     Route: 048
     Dates: start: 201610
  7. WARFARIN [Concomitant]
     Active Substance: WARFARIN
     Indication: Heritable pulmonary arterial hypertension
     Dosage: 2.5 MG, QD
     Route: 048
     Dates: start: 200605
  8. ADEMPAS [Concomitant]
     Active Substance: RIOCIGUAT
     Indication: Heritable pulmonary arterial hypertension
     Dosage: 2.5 MG, TID
     Route: 048
     Dates: start: 201611

REACTIONS (14)
  - Immunoglobulin G4 related disease [Recovering/Resolving]
  - Hypergammaglobulinaemia [Recovering/Resolving]
  - Immune thrombocytopenia [Not Recovered/Not Resolved]
  - Lymphadenopathy [Recovering/Resolving]
  - Swelling of eyelid [Recovering/Resolving]
  - Submaxillary gland enlargement [Recovering/Resolving]
  - Lung disorder [Not Recovered/Not Resolved]
  - Pancreatic enlargement [Recovering/Resolving]
  - Heritable pulmonary arterial hypertension [Recovering/Resolving]
  - Condition aggravated [Recovering/Resolving]
  - Dyspnoea exertional [Recovering/Resolving]
  - Pulmonary arterial pressure increased [Recovering/Resolving]
  - Product use issue [Unknown]
  - Off label use [Unknown]

NARRATIVE: CASE EVENT DATE: 20200701
